FAERS Safety Report 7563244-6 (Version None)
Quarter: 2011Q2

REPORT INFORMATION
  Report Type: 
  Country: None (occurrence: None)
  Receive Date: 20110622
  Receipt Date: 20110608
  Transmission Date: 20111010
  Serious: Yes (Death)
  Sender: FDA-Public Use
  Company Number: IT-PFIZER INC-2011132045

PATIENT

DRUGS (5)
  1. ALLOPURINOL [Concomitant]
     Dosage: 300 MG, UNK
     Route: 048
     Dates: start: 20091203, end: 20100104
  2. LANSOPRAZOLE [Concomitant]
     Dosage: 30 MG, UNK
     Route: 048
     Dates: start: 20091203, end: 20100104
  3. SUTENT [Suspect]
     Indication: RENAL CANCER
     Dosage: 37.5 MG, 1X/DAY
     Route: 048
     Dates: start: 20091218, end: 20100104
  4. LISINOPRIL AND HYDROCHLOROTHIAZIDE [Concomitant]
     Dosage: 20 MG, UNK
     Route: 048
     Dates: start: 20091203, end: 20100105
  5. FRAGMIN [Concomitant]
     Dosage: 5000 IU, UNK
     Route: 058
     Dates: start: 20091203, end: 20100104

REACTIONS (5)
  - HAEMATURIA [None]
  - IMMUNE SYSTEM DISORDER [None]
  - STOMATITIS [None]
  - LEUKOPENIA [None]
  - THROMBOCYTOPENIA [None]
